FAERS Safety Report 5066060-2 (Version None)
Quarter: 2006Q3

REPORT INFORMATION
  Report Type: 
  Country: None (occurrence: None)
  Receive Date: 20060731
  Receipt Date: 20060731
  Transmission Date: 20061208
  Serious: Yes (Other)
  Sender: FDA-Public Use
  Company Number: None

PATIENT
  Age: 79 Year
  Sex: Female
  Weight: 79.3795 kg

DRUGS (2)
  1. LIPITOR [Suspect]
     Indication: BLOOD CHOLESTEROL INCREASED
     Dosage: 40 MG DAILY PO
     Route: 048
     Dates: start: 20060101, end: 20060401
  2. CRESTOR [Suspect]
     Indication: BLOOD CHOLESTEROL INCREASED
     Dates: start: 20060701, end: 20060712

REACTIONS (2)
  - ARTHRALGIA [None]
  - SCIATICA [None]
